FAERS Safety Report 4604520-6 (Version None)
Quarter: 2005Q2

REPORT INFORMATION
  Report Type: 
  Country: None (occurrence: None)
  Receive Date: 20050217
  Receipt Date: 20041028
  Transmission Date: 20051028
  Serious: No
  Sender: FDA-Public Use
  Company Number: S04-USA-06994-01

PATIENT
  Age: 79 Year
  Sex: Male

DRUGS (5)
  1. NAMENDA [Suspect]
     Indication: AMNESIA
     Dosage: 5 MG QD PO
     Route: 048
     Dates: start: 20040901, end: 20040901
  2. NAMENDA [Suspect]
     Indication: AMNESIA
     Dosage: 5 MG BID PO
     Route: 048
     Dates: start: 20040901, end: 20040901
  3. NAMENDA [Suspect]
     Indication: AMNESIA
     Dosage: 15 MG QD PO
     Route: 048
     Dates: start: 20040901, end: 20040901
  4. METAMUCIL-2 [Concomitant]
  5. NEURONTIN [Concomitant]

REACTIONS (1)
  - CONSTIPATION [None]
